FAERS Safety Report 6555811-3 (Version None)
Quarter: 2010Q1

REPORT INFORMATION
  Report Type: 
  Country: None (occurrence: None)
  Receive Date: 20100128
  Receipt Date: 20100118
  Transmission Date: 20100710
  Serious: Yes (Other)
  Sender: FDA-Public Use
  Company Number: FR-BAYER-200943718GPV

PATIENT
  Sex: Female
  Weight: 69 kg

DRUGS (3)
  1. MIRENA [Suspect]
     Indication: MENORRHAGIA
     Route: 015
     Dates: start: 20070123
  2. EXACYL [Concomitant]
     Indication: MENORRHAGIA
     Dosage: 6 TABLETS/DAY; 5 DAYS/MONTH
     Dates: start: 20050101
  3. DICYNONE [Concomitant]
     Indication: MENORRHAGIA
     Dates: start: 20060101

REACTIONS (1)
  - COLON CANCER [None]
